FAERS Safety Report 23332666 (Version 1)
Quarter: 2023Q4

REPORT INFORMATION
  Report Type: Spontaneous
  Country: SK (occurrence: SK)
  Receive Date: 20231222
  Receipt Date: 20231222
  Transmission Date: 20240109
  Serious: Yes (Other)
  Sender: FDA-Public Use
  Company Number: SK-GLENMARK PHARMACEUTICALS-2023GMK084234

PATIENT
  Age: 51 Year
  Sex: Female

DRUGS (5)
  1. BORTEZOMIB [Suspect]
     Active Substance: BORTEZOMIB
     Indication: Product used for unknown indication
     Dosage: UNK
     Route: 065
  2. CYCLOPHOSPHAMIDE [Suspect]
     Active Substance: CYCLOPHOSPHAMIDE
     Indication: Product used for unknown indication
     Dosage: UNK
     Route: 065
  3. DEXAMETHASONE [Suspect]
     Active Substance: DEXAMETHASONE
     Indication: Product used for unknown indication
     Dosage: UNK
     Route: 065
  4. MELPHALAN [Suspect]
     Active Substance: MELPHALAN
     Indication: Product used for unknown indication
     Dosage: 200 MILLIGRAM PER SQUARE METRE
     Route: 065
     Dates: start: 20220214
  5. VINORELBINE TARTRATE [Suspect]
     Active Substance: VINORELBINE TARTRATE
     Indication: Product used for unknown indication
     Dosage: UNK
     Route: 065

REACTIONS (7)
  - Febrile neutropenia [Unknown]
  - Condition aggravated [Unknown]
  - Cytomegalovirus infection reactivation [Unknown]
  - Thrombocytopenia [Unknown]
  - Enterocolitis haemorrhagic [Unknown]
  - Liver disorder [Unknown]
  - Escherichia bacteraemia [Unknown]
